FAERS Safety Report 9693981 (Version 1)
Quarter: 2013Q4

REPORT INFORMATION
  Report Type: Spontaneous
  Country: US (occurrence: US)
  Receive Date: 20131118
  Receipt Date: 20131118
  Transmission Date: 20140711
  Serious: Yes (Disabling, Other)
  Sender: FDA-Public Use
  Company Number: US-ELI_LILLY_AND_COMPANY-US201311002256

PATIENT
  Age: 66 Year
  Sex: Male

DRUGS (9)
  1. HUMULIN 30% REGULAR, 70% NPH [Suspect]
     Indication: TYPE 1 DIABETES MELLITUS
     Dosage: UNK
     Route: 065
  2. HUMALOG LISPRO [Suspect]
     Indication: TYPE 1 DIABETES MELLITUS
     Dosage: UNK
     Route: 065
  3. SIMVASTATIN [Concomitant]
  4. LISINOPRIL [Concomitant]
  5. PANTOPRAZOL [Concomitant]
  6. CITALOPRAM [Concomitant]
  7. AZITHROMYCIN [Concomitant]
     Indication: IMPAIRED GASTRIC EMPTYING
  8. GABAPENTIN [Concomitant]
  9. HYDROCODONE [Concomitant]
     Indication: BACK INJURY

REACTIONS (2)
  - Blindness [Not Recovered/Not Resolved]
  - Incorrect dose administered [Unknown]
